FAERS Safety Report 20644790 (Version 2)
Quarter: 2022Q3

REPORT INFORMATION
  Report Type: Spontaneous
  Country: CA (occurrence: CA)
  Receive Date: 20220328
  Receipt Date: 20220712
  Transmission Date: 20221026
  Serious: Yes (Other)
  Sender: FDA-Public Use
  Company Number: CA-GLAXOSMITHKLINE-CA2022GSK053116

PATIENT

DRUGS (2)
  1. ZANTAC [Suspect]
     Active Substance: RANITIDINE HYDROCHLORIDE
     Indication: Gastrooesophageal reflux disease
     Dosage: UNK
     Route: 065
     Dates: start: 1995
  2. ZANTAC [Suspect]
     Active Substance: RANITIDINE HYDROCHLORIDE
     Indication: Abdominal pain upper

REACTIONS (9)
  - Colorectal cancer stage IV [Unknown]
  - Rectal haemorrhage [Unknown]
  - Rectosigmoid cancer [Unknown]
  - Metastases to liver [Unknown]
  - Rectal cancer metastatic [Unknown]
  - Rectal adenocarcinoma [Unknown]
  - Abdominal pain [Unknown]
  - Anorectal discomfort [Unknown]
  - Constipation [Unknown]
